FAERS Safety Report 5163001-4 (Version None)
Quarter: 2006Q4

REPORT INFORMATION
  Report Type: 
  Country: None (occurrence: None)
  Receive Date: 20061201
  Receipt Date: 20061120
  Transmission Date: 20070319
  Serious: Yes (Hospitalization)
  Sender: FDA-Public Use
  Company Number: DE-ELI_LILLY_AND_COMPANY-DE200611004292

PATIENT
  Age: 71 Year
  Sex: Female

DRUGS (4)
  1. FORTEO [Suspect]
     Indication: OSTEOPOROSIS
     Dosage: 20 UG, DAILY (1/D)
     Route: 058
     Dates: start: 20061001
  2. BISOPROLOL W/HYDROCHLOROTHIAZIDE [Concomitant]
     Dosage: UNK MG, DAILY (1/D)
  3. LASIX - SLOW RELEASE [Concomitant]
     Dosage: 30 MG, UNK
     Route: 048
  4. ARCOXIA [Concomitant]
     Dosage: UNK, AS NEEDED

REACTIONS (1)
  - VENOUS THROMBOSIS [None]
